FAERS Safety Report 5974409-9 (Version None)
Quarter: 2008Q4

REPORT INFORMATION
  Report Type: 
  Country: None (occurrence: None)
  Receive Date: 20081128
  Receipt Date: 20081117
  Transmission Date: 20090506
  Serious: No
  Sender: FDA-Public Use
  Company Number: 0050011

PATIENT

DRUGS (1)
  1. PLETAL [Suspect]
     Route: 048

REACTIONS (1)
  - EPILEPSY [None]
